FAERS Safety Report 11714806 (Version 1)
Quarter: 2015Q4

REPORT INFORMATION
  Report Type: Report from Study
  Country: KR (occurrence: KR)
  Receive Date: 20151109
  Receipt Date: 20151109
  Transmission Date: 20160304
  Serious: No
  Sender: FDA-Public Use
  Company Number: PHHY2015KR145717

PATIENT
  Age: 47 Year
  Sex: Male

DRUGS (10)
  1. GELMA [Concomitant]
     Indication: GASTRIC ULCER
     Dosage: 10 G,
     Route: 048
     Dates: start: 20140516
  2. PK-MERZ [Concomitant]
     Active Substance: AMANTADINE
     Indication: GAIT DISTURBANCE
     Dosage: 200 MG,
     Route: 048
     Dates: start: 20140603
  3. ALLOPURINOL. [Concomitant]
     Active Substance: ALLOPURINOL
     Indication: GOUT
     Dosage: 300 MG,
     Route: 048
     Dates: start: 20140516, end: 20140605
  4. TRITTICO [Concomitant]
     Active Substance: TRAZODONE HYDROCHLORIDE
     Indication: INSOMNIA
     Dosage: 25 MG,
     Route: 048
     Dates: start: 20140531, end: 20150622
  5. TASIGNA [Suspect]
     Active Substance: NILOTINIB
     Indication: CHRONIC MYELOID LEUKAEMIA
     Dosage: 600 MG, QD
     Route: 048
     Dates: start: 20140522, end: 20141230
  6. ATIVAN [Concomitant]
     Active Substance: LORAZEPAM
     Indication: INSOMNIA
     Dosage: 0.5 MG,
     Route: 048
     Dates: start: 20140531, end: 20150622
  7. MULEX [Concomitant]
     Indication: ATAXIA
     Dosage: 150 MG,
     Route: 048
     Dates: start: 20141209
  8. NEUROCARN [Concomitant]
     Indication: ATAXIA
     Dosage: 1000 MG,
     Route: 048
     Dates: start: 20141021, end: 20141210
  9. PANTOLOC ^BYK GULDEN^ [Concomitant]
     Indication: GASTRIC ULCER
     Dosage: 40 MG,
     Route: 048
     Dates: start: 20140513, end: 20140811
  10. LYRICA [Concomitant]
     Active Substance: PREGABALIN
     Indication: HERPES ZOSTER
     Dosage: 150 MG,
     Route: 048
     Dates: start: 20140610

REACTIONS (1)
  - Anxiety [Not Recovered/Not Resolved]

NARRATIVE: CASE EVENT DATE: 20140601
